FAERS Safety Report 7729462-9 (Version None)
Quarter: 2011Q3

REPORT INFORMATION
  Report Type: 
  Country: None (occurrence: None)
  Receive Date: 20110906
  Receipt Date: 20110826
  Transmission Date: 20111222
  Serious: Yes (Other)
  Sender: FDA-Public Use
  Company Number: NO-JNJFOC-20110900016

PATIENT
  Age: 9 Year
  Sex: Male
  Weight: 20 kg

DRUGS (4)
  1. CONCERTA [Suspect]
     Indication: ATTENTION DEFICIT/HYPERACTIVITY DISORDER
     Route: 048
  2. CONCERTA [Suspect]
     Route: 048
  3. CONCERTA [Suspect]
     Route: 048
  4. CONCERTA [Suspect]
     Route: 048
     Dates: start: 20100201

REACTIONS (10)
  - GROWTH RETARDATION [None]
  - WEIGHT DECREASED [None]
  - HALLUCINATION, OLFACTORY [None]
  - AGGRESSION [None]
  - PSYCHOTIC DISORDER [None]
  - ANXIETY [None]
  - HALLUCINATION, VISUAL [None]
  - INSOMNIA [None]
  - DECREASED APPETITE [None]
  - HALLUCINATION, AUDITORY [None]
